FAERS Safety Report 13008070 (Version 1)
Quarter: 2016Q4

REPORT INFORMATION
  Report Type: Spontaneous
  Country: CA (occurrence: CA)
  Receive Date: 20161208
  Receipt Date: 20161208
  Transmission Date: 20170207
  Serious: Yes (Other)
  Sender: FDA-Public Use
  Company Number: CA-009507513-1612CAN002810

PATIENT
  Sex: Male

DRUGS (2)
  1. KEYTRUDA [Suspect]
     Active Substance: PEMBROLIZUMAB
     Route: 065
  2. DILANTIN [Concomitant]
     Active Substance: PHENYTOIN
     Route: 065

REACTIONS (1)
  - Stevens-Johnson syndrome [Unknown]
